FAERS Safety Report 17132788 (Version 2)
Quarter: 2019Q4

REPORT INFORMATION
  Report Type: Report from Study
  Country: US (occurrence: US)
  Receive Date: 20191210
  Receipt Date: 20191213
  Transmission Date: 20200122
  Serious: Yes (Other)
  Sender: FDA-Public Use
  Company Number: US-GILEAD-2019-0441701

PATIENT
  Age: 53 Year
  Sex: Female
  Weight: 67.3 kg

DRUGS (4)
  1. AMBRISENTAN [Suspect]
     Active Substance: AMBRISENTAN
     Indication: PULMONARY HYPERTENSION
     Dosage: 10 MG, QD
     Route: 065
     Dates: start: 20190910
  2. ORENITRAM [Concomitant]
     Active Substance: TREPROSTINIL
  3. METHAMPHETAMINE HCL [Concomitant]
     Active Substance: METHAMPHETAMINE HYDROCHLORIDE
  4. AMBRISENTAN [Suspect]
     Active Substance: AMBRISENTAN
     Indication: SUBSTANCE USE

REACTIONS (1)
  - Diverticulitis [Unknown]
